FAERS Safety Report 6550667-7 (Version None)
Quarter: 2010Q1

REPORT INFORMATION
  Report Type: 
  Country: None (occurrence: None)
  Receive Date: 20100125
  Receipt Date: 20090710
  Transmission Date: 20100710
  Serious: No
  Sender: FDA-Public Use
  Company Number: US-TYCO HEALTHCARE/MALLINCKRODT-T200901352

PATIENT
  Age: 70 Year
  Sex: Male
  Weight: 106.12 kg

DRUGS (6)
  1. OPTIRAY 350 [Suspect]
     Indication: COMPUTERISED TOMOGRAM THORAX
     Dosage: UNK
     Route: 042
     Dates: start: 20090629, end: 20090629
  2. NORVASC [Concomitant]
     Indication: HYPERTENSION
     Route: 048
  3. BUSPAR [Concomitant]
     Indication: ANXIETY
     Route: 048
  4. ALLOPURINOL [Concomitant]
     Indication: GOUT
     Route: 048
  5. LIPITOR [Concomitant]
     Indication: BLOOD CHOLESTEROL INCREASED
     Route: 048
  6. MULTIVITAMIN                       /00831701/ [Concomitant]
     Indication: SUPPLEMENTATION THERAPY
     Route: 048

REACTIONS (4)
  - ERYTHEMA [None]
  - PHOTOPHOBIA [None]
  - PRURITUS [None]
  - SWELLING [None]
